FAERS Safety Report 11072028 (Version 1)
Quarter: 2015Q2

REPORT INFORMATION
  Report Type: Spontaneous
  Country: US (occurrence: US)
  Receive Date: 20150428
  Receipt Date: 20150428
  Transmission Date: 20150821
  Serious: No
  Sender: FDA-Public Use
  Company Number: US-BAUSCH-BL-2014-008736

PATIENT
  Age: 93 Year
  Sex: Female

DRUGS (3)
  1. LOTEMAX [Suspect]
     Active Substance: LOTEPREDNOL ETABONATE
     Indication: HORDEOLUM
  2. LOTEMAX [Suspect]
     Active Substance: LOTEPREDNOL ETABONATE
     Indication: EYE PRURITUS
  3. LOTEMAX [Suspect]
     Active Substance: LOTEPREDNOL ETABONATE
     Indication: OCULAR HYPERAEMIA
     Dosage: ONE DROP IN EACH EYE
     Route: 047

REACTIONS (1)
  - Drug ineffective [Not Recovered/Not Resolved]
